FAERS Safety Report 17739878 (Version 1)
Quarter: 2020Q2

REPORT INFORMATION
  Report Type: Other
  Country: US (occurrence: US)
  Receive Date: 20200504
  Receipt Date: 20200504
  Transmission Date: 20200714
  Serious: Yes (Hospitalization, Other)
  Sender: FDA-Public Use
  Company Number: US-USV-000095

PATIENT
  Age: 72 Year
  Sex: Female

DRUGS (1)
  1. EPTIFIBATIDE. [Suspect]
     Active Substance: EPTIFIBATIDE
     Indication: MUSCULAR WEAKNESS
     Route: 042

REACTIONS (8)
  - Pelvic haematoma [Unknown]
  - Disseminated intravascular coagulation [Unknown]
  - Extravasation [Unknown]
  - Intestinal infarction [Unknown]
  - Hypotension [Unknown]
  - Haemoglobin decreased [Unknown]
  - Spinal cord infarction [Unknown]
  - Renal infarct [Unknown]
